FAERS Safety Report 8392334-3 (Version None)
Quarter: 2012Q2

REPORT INFORMATION
  Report Type: 
  Country: None (occurrence: None)
  Receive Date: 20120529
  Receipt Date: 20120514
  Transmission Date: 20120825
  Serious: Yes (Other)
  Sender: FDA-Public Use
  Company Number: US-ROCHE-1072769

PATIENT

DRUGS (1)
  1. AVASTIN [Suspect]
     Indication: COLORECTAL CANCER METASTATIC
     Dates: start: 20090101, end: 20090201

REACTIONS (3)
  - ANAL FISSURE [None]
  - ANAL FISTULA [None]
  - SUBCUTANEOUS ABSCESS [None]
